FAERS Safety Report 23115289 (Version 2)
Quarter: 2024Q3

REPORT INFORMATION
  Report Type: Report from Study
  Country: IT (occurrence: IT)
  Receive Date: 20231027
  Receipt Date: 20240729
  Transmission Date: 20241016
  Serious: Yes (Hospitalization, Other)
  Sender: UCB
  Company Number: IT-UCBSA-2023051358

PATIENT
  Sex: Male

DRUGS (1)
  1. VIMPAT [Suspect]
     Active Substance: LACOSAMIDE
     Indication: Epilepsy
     Dosage: 200 MILLIGRAM,  56 TABLETS

REACTIONS (4)
  - Seizure [Unknown]
  - Candida pneumonia [Unknown]
  - Decubitus ulcer [Unknown]
  - Rehabilitation therapy [Unknown]

NARRATIVE: CASE EVENT DATE: 20230101
